FAERS Safety Report 7315701-5 (Version None)
Quarter: 2011Q1

REPORT INFORMATION
  Report Type: 
  Country: None (occurrence: None)
  Receive Date: 20110225
  Receipt Date: 20101130
  Transmission Date: 20110831
  Serious: Yes (Life-Threatening, Other)
  Sender: FDA-Public Use
  Company Number: CA-BAYER-2010-002801

PATIENT
  Age: 23 Year
  Sex: Female

DRUGS (1)
  1. YAZ [Suspect]
     Dosage: UNK
     Dates: start: 20090801, end: 20100101

REACTIONS (3)
  - PULMONARY EMBOLISM [None]
  - CHOLELITHIASIS [None]
  - DEEP VEIN THROMBOSIS [None]
